FAERS Safety Report 17154033 (Version 2)
Quarter: 2019Q4

REPORT INFORMATION
  Report Type: Report from Study
  Country: US (occurrence: US)
  Receive Date: 20191213
  Receipt Date: 20191227
  Transmission Date: 20200122
  Serious: Yes (Death, Hospitalization, Other)
  Sender: FDA-Public Use
  Company Number: US-GILEAD-2019-0442731

PATIENT
  Age: 73 Year
  Sex: Male
  Weight: 99.64 kg

DRUGS (1)
  1. AMBRISENTAN [Suspect]
     Active Substance: AMBRISENTAN
     Indication: PRODUCT USED FOR UNKNOWN INDICATION
     Dosage: 10 MG, QD
     Route: 048
     Dates: start: 20190624

REACTIONS (3)
  - Chronic obstructive pulmonary disease [Unknown]
  - Acute respiratory failure [Fatal]
  - Pulmonary hypertension [Unknown]

NARRATIVE: CASE EVENT DATE: 20191205
